FAERS Safety Report 17716652 (Version 1)
Quarter: 2020Q2

REPORT INFORMATION
  Report Type: Spontaneous
  Country: CN (occurrence: CN)
  Receive Date: 20200428
  Receipt Date: 20200428
  Transmission Date: 20200714
  Serious: Yes (Death)
  Sender: FDA-Public Use
  Company Number: CN-ROCHE-2589212

PATIENT
  Age: 72 Year
  Sex: Male

DRUGS (3)
  1. CAPECITABINE. [Suspect]
     Active Substance: CAPECITABINE
     Indication: ADENOCARCINOMA OF COLON
     Dosage: DAY1-14, 3 WEEKS AS ONE CYCLE, 4 CYCLES CAPEOX REGIMEN
     Route: 048
     Dates: start: 20180323, end: 20180613
  2. AVASTIN [Suspect]
     Active Substance: BEVACIZUMAB
     Indication: ADENOCARCINOMA OF COLON
     Dosage: 4 CYCLES
     Route: 065
     Dates: start: 20180323, end: 20180613
  3. OXALIPLATIN. [Concomitant]
     Active Substance: OXALIPLATIN
     Indication: ADENOCARCINOMA OF COLON
     Dosage: DAY1, 3 WEEKS AS ONE CYCLE, 4 CYCLES CAPEOX REGIMEN
     Route: 041
     Dates: start: 20180323, end: 20180613

REACTIONS (3)
  - Pneumonia [Fatal]
  - Haematochezia [Unknown]
  - Epistaxis [Unknown]

NARRATIVE: CASE EVENT DATE: 20180405
